FAERS Safety Report 18792411 (Version 3)
Quarter: 2021Q1

REPORT INFORMATION
  Report Type: Spontaneous
  Country: US (occurrence: US)
  Receive Date: 20210127
  Receipt Date: 20210308
  Transmission Date: 20210419
  Serious: Yes (Hospitalization, Other)
  Sender: FDA-Public Use
  Company Number: US-ALXN-A202100980

PATIENT
  Age: 48 Year
  Sex: Male

DRUGS (1)
  1. ULTOMIRIS [Suspect]
     Active Substance: RAVULIZUMAB-CWVZ
     Indication: ATYPICAL HAEMOLYTIC URAEMIC SYNDROME
     Dosage: UNK
     Route: 042
     Dates: start: 202002

REACTIONS (8)
  - Pyrexia [Unknown]
  - Gait inability [Recovering/Resolving]
  - Weight decreased [Unknown]
  - Pain [Recovering/Resolving]
  - Muscle strain [Unknown]
  - Night sweats [Unknown]
  - Arthritis bacterial [Recovering/Resolving]
  - Chills [Unknown]

NARRATIVE: CASE EVENT DATE: 20210115
